FAERS Safety Report 8949765 (Version 1)
Quarter: 2012Q4

REPORT INFORMATION
  Report Type: Report from Study
  Country: US (occurrence: US)
  Receive Date: 20121206
  Receipt Date: 20121206
  Transmission Date: 20130627
  Serious: Yes (Other)
  Sender: FDA-Public Use
  Company Number: US-ROCHE-1163302

PATIENT
  Sex: Female

DRUGS (2)
  1. CAPECITABINE [Suspect]
     Indication: NEOPLASM MALIGNANT
     Route: 065
  2. DECADRON [Concomitant]
     Route: 065

REACTIONS (4)
  - Neoplasm [Unknown]
  - Metastases to bone [Unknown]
  - Sensory loss [Unknown]
  - Spinal cord compression [Unknown]
